FAERS Safety Report 5855845-8 (Version None)
Quarter: 2008Q3

REPORT INFORMATION
  Report Type: 
  Country: None (occurrence: None)
  Receive Date: 20080825
  Receipt Date: 20071126
  Transmission Date: 20090109
  Serious: No
  Sender: FDA-Public Use
  Company Number: A0695716A

PATIENT
  Age: 65 Year
  Sex: Female

DRUGS (7)
  1. MALARONE [Suspect]
     Indication: PROPHYLAXIS
     Dosage: 1TAB PER DAY
     Route: 048
     Dates: start: 20071025, end: 20071111
  2. ESTRATEST [Concomitant]
  3. NATURAL PROGESTERONE [Concomitant]
  4. ASPIRIN [Concomitant]
  5. CLARITIN [Concomitant]
  6. ZANTAC [Concomitant]
  7. SUPPLEMENT [Concomitant]

REACTIONS (8)
  - EATING DISORDER [None]
  - GINGIVAL ULCERATION [None]
  - LIP ULCERATION [None]
  - MOUTH ULCERATION [None]
  - PAIN [None]
  - STOMATITIS [None]
  - TONGUE ULCERATION [None]
  - WEIGHT DECREASED [None]
